FAERS Safety Report 25089914 (Version 1)
Quarter: 2025Q1

REPORT INFORMATION
  Report Type: Spontaneous
  Country: CN (occurrence: CN)
  Receive Date: 20250318
  Receipt Date: 20250318
  Transmission Date: 20250409
  Serious: Yes (Other)
  Sender: PFIZER
  Company Number: CN-PFIZER INC-PV202500032513

PATIENT
  Age: 89 Year
  Sex: Female
  Weight: 37 kg

DRUGS (1)
  1. SOLU-MEDROL [Suspect]
     Active Substance: METHYLPREDNISOLONE SODIUM SUCCINATE
     Indication: Febrile infection
     Dosage: 20 MG, 1X/DAY
     Route: 041
     Dates: start: 20250304, end: 20250311

REACTIONS (3)
  - Delirium [Recovered/Resolved]
  - Dysphoria [Recovered/Resolved]
  - Off label use [Unknown]

NARRATIVE: CASE EVENT DATE: 20250311
